FAERS Safety Report 9349206 (Version 2)
Quarter: 2013Q3

REPORT INFORMATION
  Report Type: Spontaneous
  Country: US (occurrence: US)
  Receive Date: 20130614
  Receipt Date: 20130702
  Transmission Date: 20140515
  Serious: Yes (Death, Other)
  Sender: FDA-Public Use
  Company Number: US-AMGEN-USASP2013041903

PATIENT
  Age: 74 Year
  Sex: Female

DRUGS (1)
  1. PROCRIT [Suspect]
     Indication: PRODUCT USED FOR UNKNOWN INDICATION
     Dosage: UNK
     Route: 065

REACTIONS (12)
  - Death [Fatal]
  - Metastases to bone [Unknown]
  - Renal failure [Unknown]
  - Plasma cell myeloma [Unknown]
  - Musculoskeletal pain [Unknown]
  - Back pain [Unknown]
  - Wheelchair user [Unknown]
  - Anaemia [Unknown]
  - Breath sounds abnormal [Unknown]
  - Arthralgia [Unknown]
  - Bone pain [Unknown]
  - Myalgia [Unknown]
